FAERS Safety Report 7115035-8 (Version None)
Quarter: 2010Q4

REPORT INFORMATION
  Report Type: 
  Country: None (occurrence: None)
  Receive Date: 20101122
  Receipt Date: 20101109
  Transmission Date: 20110411
  Serious: Yes (Other)
  Sender: FDA-Public Use
  Company Number: US-RB-015156-10

PATIENT
  Sex: Male

DRUGS (1)
  1. MUCINEX D [Suspect]
     Indication: SINUSITIS
     Dosage: TOOK ONE PILL FOR FIRST DOSE THEN TWO PILLS PER DOSE. TOOK IT AT 8AM AND 8PM FOR TWO DAYS.
     Route: 048

REACTIONS (1)
  - ANURIA [None]
